FAERS Safety Report 16221432 (Version 4)
Quarter: 2020Q1

REPORT INFORMATION
  Report Type: Spontaneous
  Country: BR (occurrence: BR)
  Receive Date: 20190422
  Receipt Date: 20200228
  Transmission Date: 20200409
  Serious: Yes (Other)
  Sender: FDA-Public Use
  Company Number: BR-SA-2019SA090484

PATIENT
  Age: 61 Year
  Sex: Male
  Weight: 98 kg

DRUGS (17)
  1. APIDRA SOLOSTAR [Suspect]
     Active Substance: INSULIN GLULISINE
     Dosage: 5 IU TO 8 IU
     Route: 065
     Dates: start: 2017
  2. THIOCTACID [THIOCTIC ACID] [Concomitant]
     Indication: PARAESTHESIA
     Dosage: 1 DF
     Route: 048
     Dates: start: 2008
  3. VASOGARD [Concomitant]
     Active Substance: CILOSTAZOL
     Dosage: UNK
     Route: 065
  4. ROSUVASTATIN. [Concomitant]
     Active Substance: ROSUVASTATIN
     Indication: BLOOD CHOLESTEROL
     Dosage: 1 DF, HS
     Route: 048
     Dates: start: 2008
  5. LANTUS [Suspect]
     Active Substance: INSULIN GLARGINE
     Indication: DIABETES MELLITUS
     Dosage: 40 IU
     Route: 065
     Dates: start: 2009
  6. VICTOZA [Concomitant]
     Active Substance: LIRAGLUTIDE
     Indication: DIABETES MELLITUS
     Dosage: 1.2 U, QD
     Route: 058
     Dates: start: 2008
  7. INDAPAMIDE. [Concomitant]
     Active Substance: INDAPAMIDE
     Indication: DIURETIC THERAPY
     Dosage: 1 DF, QD
     Route: 048
     Dates: start: 2008
  8. CLORDOX [Concomitant]
     Dosage: UNK
     Route: 065
  9. APIDRA SOLOSTAR [Suspect]
     Active Substance: INSULIN GLULISINE
     Dosage: 3 TO 5 UI
     Route: 058
     Dates: start: 2011
  10. TOUJEO [Suspect]
     Active Substance: INSULIN GLARGINE
     Dosage: UNK
     Route: 065
     Dates: start: 2018
  11. LOSARTAN. [Concomitant]
     Active Substance: LOSARTAN
     Indication: HYPERTENSION
     Dosage: 2 TABLETS, QD
     Route: 065
     Dates: start: 2008
  12. LORAX [LORAZEPAM] [Concomitant]
     Active Substance: LORAZEPAM
     Indication: SOMNOLENCE
     Dosage: 1 DF, HS
     Route: 048
     Dates: start: 2008
  13. GLIFAGE [Concomitant]
     Active Substance: METFORMIN HYDROCHLORIDE
     Indication: BLOOD GLUCOSE
     Dosage: UNK UNK, BID
     Route: 048
     Dates: start: 2008
  14. TORLOS [Concomitant]
     Active Substance: LOSARTAN POTASSIUM
     Indication: BLOOD PRESSURE MEASUREMENT
     Dosage: UNK
     Route: 048
     Dates: start: 2008
  15. NOVORAPID [Concomitant]
     Active Substance: INSULIN ASPART
     Indication: BLOOD GLUCOSE
     Dosage: DEPENDS ON BLOOD LUCOSE 5 TO 18 IU
     Route: 058
     Dates: start: 2008
  16. DIAMICRON [Concomitant]
     Active Substance: GLICLAZIDE
     Dosage: 2 DF, QD
     Route: 048
     Dates: start: 2008
  17. DAFLON [DIOSMIN] [Concomitant]
     Active Substance: DIOSMIN
     Indication: PARAESTHESIA
     Dosage: 1 DF, QD
     Route: 048
     Dates: start: 2008

REACTIONS (12)
  - Dengue fever [Recovering/Resolving]
  - Product storage error [Unknown]
  - Multiple use of single-use product [Unknown]
  - Incorrect dose administered [Unknown]
  - Wrong technique in device usage process [Unknown]
  - Malaise [Recovered/Resolved]
  - Hypoglycaemia [Recovered/Resolved]
  - Device operational issue [Unknown]
  - Osteoporotic fracture [Unknown]
  - Hyperglycaemia [Unknown]
  - Drug ineffective [Unknown]
  - Wrong product administered [Unknown]

NARRATIVE: CASE EVENT DATE: 20190331
